FAERS Safety Report 25324249 (Version 1)
Quarter: 2025Q2

REPORT INFORMATION
  Report Type: Spontaneous
  Country: GB (occurrence: GB)
  Receive Date: 20250516
  Receipt Date: 20250516
  Transmission Date: 20250716
  Serious: Yes (Other)
  Sender: CIPLA
  Company Number: GB-MHRA-MED-202505041115405450-PZWMY

PATIENT

DRUGS (1)
  1. CETIRIZINE [Suspect]
     Active Substance: CETIRIZINE HYDROCHLORIDE
     Indication: Product used for unknown indication
     Dosage: 1 DOSAGE FORM, QD (TAKE ONE EVERY MORNING)
     Route: 065

REACTIONS (1)
  - Anxiety [Unknown]
